FAERS Safety Report 16092852 (Version 1)
Quarter: 2019Q1

REPORT INFORMATION
  Report Type: Spontaneous
  Country: RU (occurrence: RU)
  Receive Date: 20190320
  Receipt Date: 20190320
  Transmission Date: 20190418
  Serious: Yes (Hospitalization, Other)
  Sender: FDA-Public Use
  Company Number: RU-SUN PHARMACEUTICAL INDUSTRIES LTD-2019R1-202411

PATIENT
  Age: 41 Year
  Sex: Female

DRUGS (1)
  1. DELSIA [Suspect]
     Active Substance: DROSPIRENONE\ETHINYL ESTRADIOL
     Indication: CONTRACEPTION
     Dosage: 1 DOSAGE FORM, DAILY
     Route: 065
     Dates: start: 20181215, end: 20190215

REACTIONS (3)
  - Salpingectomy [None]
  - Ectopic pregnancy under hormonal contraception [Recovered/Resolved with Sequelae]
  - Ovarian neoplasm [Recovered/Resolved]

NARRATIVE: CASE EVENT DATE: 20190215
